FAERS Safety Report 21585743 (Version 1)
Quarter: 2022Q4

REPORT INFORMATION
  Report Type: Report from Study
  Country: ZA (occurrence: ZA)
  Receive Date: 20221111
  Receipt Date: 20221111
  Transmission Date: 20230113
  Serious: Yes (Hospitalization, Other)
  Sender: FDA-Public Use
  Company Number: ZA-ABBVIE-4194952

PATIENT
  Age: 31 Year
  Sex: Female

DRUGS (2)
  1. HUMIRA [Suspect]
     Active Substance: ADALIMUMAB
     Indication: Rheumatoid arthritis
     Route: 058
     Dates: start: 20221020
  2. HUMIRA [Suspect]
     Active Substance: ADALIMUMAB
     Dates: start: 20220819, end: 20221006

REACTIONS (5)
  - Internal haemorrhage [Recovering/Resolving]
  - Haematemesis [Recovering/Resolving]
  - Pancreatic injury [Recovering/Resolving]
  - Suicidal ideation [Not Recovered/Not Resolved]
  - Gastric ulcer haemorrhage [Recovering/Resolving]

NARRATIVE: CASE EVENT DATE: 20221108
